FAERS Safety Report 5490179-5 (Version None)
Quarter: 2007Q4

REPORT INFORMATION
  Report Type: 
  Country: None (occurrence: None)
  Receive Date: 20071018
  Receipt Date: 20071008
  Transmission Date: 20080405
  Serious: Yes (Hospitalization)
  Sender: FDA-Public Use
  Company Number: US-BAXTER-2007BH008331

PATIENT
  Sex: Female

DRUGS (2)
  1. EXTRANEAL [Suspect]
     Indication: PERITONEAL DIALYSIS
     Route: 033
  2. DIANEAL [Concomitant]
     Indication: PERITONEAL DIALYSIS
     Route: 033

REACTIONS (3)
  - CEREBROVASCULAR ACCIDENT [None]
  - DEVICE INTERACTION [None]
  - HYPOGLYCAEMIA [None]
